FAERS Safety Report 15705875 (Version 1)
Quarter: 2018Q4

REPORT INFORMATION
  Report Type: Report from Study
  Country: US (occurrence: US)
  Receive Date: 20181210
  Receipt Date: 20181210
  Transmission Date: 20190205
  Serious: Yes (Hospitalization)
  Sender: FDA-Public Use
  Company Number: US-EXELIXIS-CABO-18016913

PATIENT
  Sex: Female

DRUGS (15)
  1. CREON [Concomitant]
     Active Substance: PANCRELIPASE AMYLASE\PANCRELIPASE LIPASE\PANCRELIPASE PROTEASE
  2. POLYETHYLENE GLYCOL [Concomitant]
     Active Substance: POLYETHYLENE GLYCOLS
  3. LOSARTAN. [Concomitant]
     Active Substance: LOSARTAN
  4. CABOMETYX [Suspect]
     Active Substance: CABOZANTINIB S-MALATE
     Indication: RENAL CANCER
     Dosage: 40 MG, QD
     Route: 048
     Dates: start: 20170517, end: 2017
  5. LOVASTATIN. [Concomitant]
     Active Substance: LOVASTATIN
  6. CARAFATE [Concomitant]
     Active Substance: SUCRALFATE
  7. LEVOTHYROXINE. [Concomitant]
     Active Substance: LEVOTHYROXINE
  8. ULTRACET [Concomitant]
     Active Substance: ACETAMINOPHEN\TRAMADOL HYDROCHLORIDE
  9. VITAMIN B12 [Concomitant]
     Active Substance: CYANOCOBALAMIN
     Dosage: UNK
  10. VITAMIN D [Concomitant]
     Active Substance: CHOLECALCIFEROL
  11. GLIPIZIDE. [Concomitant]
     Active Substance: GLIPIZIDE
  12. GABAPENTIN. [Concomitant]
     Active Substance: GABAPENTIN
  13. CABOMETYX [Suspect]
     Active Substance: CABOZANTINIB S-MALATE
     Indication: METASTASES TO ADRENALS
     Dosage: 20 MG, QD
     Route: 048
     Dates: start: 20170825
  14. ONDANSETRON [Concomitant]
     Active Substance: ONDANSETRON
  15. TIZANIDINE. [Concomitant]
     Active Substance: TIZANIDINE

REACTIONS (6)
  - Nasal ulcer [Not Recovered/Not Resolved]
  - Feeling hot [Not Recovered/Not Resolved]
  - Bone pain [Not Recovered/Not Resolved]
  - Decreased appetite [Not Recovered/Not Resolved]
  - Skin ulcer [Not Recovered/Not Resolved]
  - Blood glucose decreased [Not Recovered/Not Resolved]

NARRATIVE: CASE EVENT DATE: 2018
